FAERS Safety Report 5190972-2 (Version None)
Quarter: 2006Q4

REPORT INFORMATION
  Report Type: 
  Country: None (occurrence: None)
  Receive Date: 20061222
  Receipt Date: 20061219
  Transmission Date: 20070319
  Serious: Yes (Life-Threatening, Hospitalization, Other)
  Sender: FDA-Public Use
  Company Number: TR-ABBOTT-06P-161-0353556-00

PATIENT
  Age: 58 Year
  Sex: Male

DRUGS (2)
  1. VERAPAMIL/TRANDOLAPRIL [Interacting]
     Indication: SUICIDE ATTEMPT
     Dosage: 20 TABLETS OF 180 MG VERAPAMIL AND 2 MG TRANDOLAPRIL
     Route: 048
  2. BEER [Suspect]
     Indication: SUICIDE ATTEMPT
     Route: 048

REACTIONS (3)
  - ATRIOVENTRICULAR BLOCK SECOND DEGREE [None]
  - DRUG TOXICITY [None]
  - SUICIDE ATTEMPT [None]
